FAERS Safety Report 20113938 (Version 1)
Quarter: 2021Q4

REPORT INFORMATION
  Report Type: Spontaneous
  Country: US (occurrence: US)
  Receive Date: 20211125
  Receipt Date: 20211125
  Transmission Date: 20220303
  Serious: No
  Sender: FDA-Public Use
  Company Number: US-PFIZER INC-2021495506

PATIENT
  Age: 57 Year
  Sex: Female
  Weight: 135.17 kg

DRUGS (1)
  1. METHYLPREDNISOLONE [Suspect]
     Active Substance: METHYLPREDNISOLONE
     Dosage: 4 MG, AT A DIFFERENT DOSE EACH DAY

REACTIONS (1)
  - Therapeutic product effect incomplete [Unknown]
